FAERS Safety Report 5005470-6 (Version None)
Quarter: 2006Q2

REPORT INFORMATION
  Report Type: 
  Country: None (occurrence: None)
  Receive Date: 20060518
  Receipt Date: 20050112
  Transmission Date: 20061013
  Serious: Yes (Hospitalization)
  Sender: FDA-Public Use
  Company Number: US-MERCK-0501USA01920

PATIENT
  Age: 74 Year
  Sex: Female
  Weight: 73 kg

DRUGS (5)
  1. VIOXX [Suspect]
     Indication: ARTHRITIS
     Route: 048
     Dates: start: 20000317, end: 20020501
  2. CALCIUM (UNSPECIFIED) [Concomitant]
     Route: 065
  3. LIPITOR [Concomitant]
     Route: 065
  4. EVISTA [Concomitant]
     Route: 065
  5. SYNTHROID [Concomitant]
     Route: 065

REACTIONS (5)
  - BACK PAIN [None]
  - EAR DISCOMFORT [None]
  - HYPERCHOLESTEROLAEMIA [None]
  - HYPERTENSION [None]
  - ISCHAEMIC STROKE [None]
